FAERS Safety Report 20220421 (Version 1)
Quarter: 2021Q4

REPORT INFORMATION
  Report Type: Spontaneous
  Country: US (occurrence: US)
  Receive Date: 20211223
  Receipt Date: 20211223
  Transmission Date: 20220303
  Serious: Yes (Hospitalization, Other)
  Sender: FDA-Public Use
  Company Number: US-AUROBINDO-AUR-APL-2021-052443

PATIENT
  Age: 69 Year
  Sex: Male

DRUGS (2)
  1. CAPECITABINE [Suspect]
     Active Substance: CAPECITABINE
     Indication: Rectal adenocarcinoma
     Dosage: UNK
     Route: 048
  2. FLUOROURACIL [Suspect]
     Active Substance: FLUOROURACIL
     Indication: Rectal adenocarcinoma
     Dosage: UNK
     Route: 065

REACTIONS (6)
  - Diarrhoea [Recovered/Resolved]
  - Urinary hesitation [Recovered/Resolved]
  - Anal incontinence [Recovered/Resolved]
  - Anal erythema [Recovered/Resolved]
  - Abdominal rigidity [Recovered/Resolved]
  - Rectal tenesmus [Recovered/Resolved]
